FAERS Safety Report 4491093-4 (Version None)
Quarter: 2004Q4

REPORT INFORMATION
  Report Type: 
  Country: None (occurrence: None)
  Receive Date: 20041102
  Receipt Date: 20041026
  Transmission Date: 20050328
  Serious: Yes (Death)
  Sender: FDA-Public Use
  Company Number: US-MERCK-0410USA03859

PATIENT
  Age: 82 Year
  Sex: Female

DRUGS (5)
  1. VIOXX [Suspect]
     Indication: SCIATIC NERVE INJURY
     Route: 048
     Dates: start: 20010827, end: 20010901
  2. LEVOTHROID [Concomitant]
     Route: 065
  3. LANOXIN [Concomitant]
     Route: 065
  4. PRINIVIL [Concomitant]
     Route: 065
  5. LESCOL [Concomitant]
     Route: 065

REACTIONS (3)
  - ANOREXIA [None]
  - DEATH [None]
  - WEIGHT DECREASED [None]
